FAERS Safety Report 18029037 (Version 3)
Quarter: 2020Q4

REPORT INFORMATION
  Report Type: Report from Study
  Country: US (occurrence: US)
  Receive Date: 20200716
  Receipt Date: 20201009
  Transmission Date: 20210113
  Serious: Yes (Other)
  Sender: FDA-Public Use
  Company Number: US-BRISTOL-MYERS SQUIBB COMPANY-BMS-2019-119826

PATIENT
  Age: 59 Year
  Sex: Female

DRUGS (1)
  1. ABATACEPT [Suspect]
     Active Substance: ABATACEPT
     Indication: RHEUMATOID ARTHRITIS
     Dosage: 125 MILLIGRAM, QWK
     Route: 058
     Dates: start: 20191119

REACTIONS (13)
  - Lumbar vertebral fracture [Unknown]
  - Dyspnoea [Recovered/Resolved]
  - Pain [Recovered/Resolved]
  - Abdominal pain upper [Recovered/Resolved]
  - Headache [Unknown]
  - Road traffic accident [Unknown]
  - Malaise [Unknown]
  - Injection site bruising [Unknown]
  - Back pain [Unknown]
  - Migraine [Recovered/Resolved]
  - Drug ineffective [Unknown]
  - Injection site haemorrhage [Unknown]
  - Dysphonia [Unknown]

NARRATIVE: CASE EVENT DATE: 20191207
